FAERS Safety Report 8887576 (Version 1)
Quarter: 2012Q4

REPORT INFORMATION
  Report Type: Spontaneous
  Country: US (occurrence: None)
  Receive Date: 20121106
  Receipt Date: 20121106
  Transmission Date: 20130627
  Serious: Yes (Disabling)
  Sender: FDA-Public Use
  Company Number: None

PATIENT
  Age: 52 Year
  Sex: Female
  Weight: 87.09 kg

DRUGS (1)
  1. KETORALAC [Suspect]
     Route: 042

REACTIONS (1)
  - No adverse event [None]
